FAERS Safety Report 9898971 (Version 1)
Quarter: 2014Q1

REPORT INFORMATION
  Report Type: Spontaneous
  Country: US (occurrence: US)
  Receive Date: 20140214
  Receipt Date: 20140214
  Transmission Date: 20141002
  Serious: Yes (Hospitalization)
  Sender: FDA-Public Use
  Company Number: US-GLAXOSMITHKLINE-A1060992A

PATIENT
  Age: 65 Year
  Sex: Female

DRUGS (1)
  1. COREG [Suspect]
     Indication: CARDIAC DISORDER
     Dosage: 6.25MG UNKNOWN
     Dates: start: 20050722

REACTIONS (1)
  - Investigation [Unknown]
